FAERS Safety Report 9128608 (Version 1)
Quarter: 2013Q1

REPORT INFORMATION
  Report Type: Report from Study
  Country: US (occurrence: US)
  Receive Date: 20130228
  Receipt Date: 20130228
  Transmission Date: 20140127
  Serious: Yes (Hospitalization)
  Sender: FDA-Public Use
  Company Number: PHHO2013US003152

PATIENT
  Age: 56 Year
  Sex: Male

DRUGS (25)
  1. PROLEUKIN [Suspect]
     Indication: RENAL CANCER METASTATIC
     Dosage: 6000 IU/KG, Q8H
     Dates: start: 20130205, end: 20130208
  2. HYDROXYCHLOROQUINE [Suspect]
     Dosage: 600 MG, UNK
     Route: 048
     Dates: start: 20130122, end: 20130216
  3. ZOLOFT [Concomitant]
     Dosage: UNK
     Dates: start: 201206, end: 20130205
  4. ZOLOFT [Concomitant]
     Dosage: UNK
     Dates: start: 20130205
  5. ALLEGRA [Concomitant]
     Dosage: UNK
     Dates: start: 2009
  6. ATIVAN [Concomitant]
     Dosage: UNK
     Dates: start: 201106
  7. ATIVAN [Concomitant]
     Dosage: UNK
     Dates: start: 20130201
  8. PEPCID [Concomitant]
     Dosage: UNK
     Dates: start: 20120328
  9. NICOTINE [Concomitant]
  10. ACETAMINOPHEN [Concomitant]
     Dosage: UNK
     Dates: end: 20130209
  11. KEFLEX                                  /UNK/ [Concomitant]
     Dosage: UNK
     Dates: start: 20130205, end: 20130209
  12. PROTONIX [Concomitant]
     Dosage: UNK
     Dates: start: 20130205, end: 20130209
  13. PROCHLORPERAZINE [Concomitant]
     Dosage: UNK
     Dates: start: 20130205, end: 20130209
  14. HALOPERIDOL [Concomitant]
  15. ONDANSETRON [Concomitant]
     Dosage: UNK
     Dates: start: 20130205, end: 20130208
  16. LOMOTIL [Concomitant]
     Dosage: UNK
     Dates: start: 20130205
  17. LUBRIDERM [Concomitant]
     Dosage: UNK
     Dates: start: 20130205
  18. HYDROXYZINE [Concomitant]
     Dosage: UNK
     Dates: start: 20130205
  19. MAGNESIUM SULFATE [Concomitant]
     Dosage: UNK
     Dates: start: 20130207, end: 20130208
  20. NORMAL SALINE [Concomitant]
     Dosage: UNK
     Dates: start: 20130207, end: 20130208
  21. SODIUM PHOSPHATE [Concomitant]
     Dosage: UNK
     Dates: start: 20130207, end: 20130208
  22. MOXIFLOXACIN [Concomitant]
     Dosage: UNK
     Dates: start: 20130209, end: 20130213
  23. AMPICILLIN [Concomitant]
     Dosage: UNK
     Dates: start: 20130208, end: 20130209
  24. MEPERIDINE [Concomitant]
     Dosage: UNK
     Dates: start: 20130205, end: 20130208
  25. ZOFRAN [Concomitant]
     Dosage: UNK
     Dates: start: 20130214

REACTIONS (4)
  - Pancreatitis acute [Unknown]
  - Abdominal pain [Unknown]
  - Nausea [Unknown]
  - Vomiting [Unknown]
